FAERS Safety Report 10886111 (Version 1)
Quarter: 2015Q1

REPORT INFORMATION
  Report Type: Spontaneous
  Country: FR (occurrence: None)
  Receive Date: 20150302
  Receipt Date: 20150302
  Transmission Date: 20150721
  Serious: Yes (Other)
  Sender: FDA-Public Use
  Company Number: FR-ALSI-201500033

PATIENT
  Age: 66 Year
  Sex: Female

DRUGS (1)
  1. OXYGEN. [Suspect]
     Active Substance: OXYGEN
     Indication: OXYGEN SATURATION DECREASED
     Dosage: 100 % TOTAL RESPIRATORY

REACTIONS (5)
  - Pharyngeal stenosis [None]
  - Thermal burn [None]
  - Laryngeal stenosis [None]
  - Accident [None]
  - Acute respiratory failure [None]
